FAERS Safety Report 11701575 (Version 1)
Quarter: 2015Q4

REPORT INFORMATION
  Report Type: Spontaneous
  Country: US (occurrence: US)
  Receive Date: 20151105
  Receipt Date: 20151105
  Transmission Date: 20160304
  Serious: No
  Sender: FDA-Public Use
  Company Number: US-MALLINCKRODT-T201404088

PATIENT
  Sex: Female
  Weight: 63 kg

DRUGS (3)
  1. FENTANYL TRANSDERMAL SYSTEM [Suspect]
     Active Substance: FENTANYL
     Dosage: 50 UG/HR, UNK
     Route: 062
     Dates: start: 201405, end: 201406
  2. FENTANYL TRANSDERMAL SYSTEM [Suspect]
     Active Substance: FENTANYL
     Indication: PAIN
     Dosage: 25 UG/HR, Q72H
     Route: 062
     Dates: start: 201410
  3. FENTANYL. [Suspect]
     Active Substance: FENTANYL
     Indication: PAIN
     Dosage: 50 UG/HR, UNK
     Route: 062
     Dates: end: 201410

REACTIONS (3)
  - Product adhesion issue [Not Recovered/Not Resolved]
  - Application site laceration [Not Recovered/Not Resolved]
  - Drug withdrawal syndrome [Not Recovered/Not Resolved]
